FAERS Safety Report 19054836 (Version 1)
Quarter: 2021Q1

REPORT INFORMATION
  Report Type: Spontaneous
  Country: US (occurrence: US)
  Receive Date: 20210325
  Receipt Date: 20210325
  Transmission Date: 20210420
  Serious: Yes (Death, Other)
  Sender: FDA-Public Use
  Company Number: US-SA-2021SA099750

PATIENT
  Age: 55 Year
  Sex: Male

DRUGS (1)
  1. ZANTAC [Suspect]
     Active Substance: RANITIDINE HYDROCHLORIDE
     Indication: GASTROOESOPHAGEAL REFLUX DISEASE
     Dosage: UNKNOWN AT THIS TIME
     Dates: start: 199201, end: 201905

REACTIONS (3)
  - Thyroid cancer [Fatal]
  - Brain neoplasm malignant [Fatal]
  - Prostate cancer [Fatal]

NARRATIVE: CASE EVENT DATE: 20011101
